FAERS Safety Report 12462388 (Version 1)
Quarter: 2016Q2

REPORT INFORMATION
  Report Type: Spontaneous
  Country: US (occurrence: US)
  Receive Date: 20160614
  Receipt Date: 20160614
  Transmission Date: 20160815
  Serious: Yes (Disabling)
  Sender: FDA-Public Use
  Company Number: PHHY2016US079445

PATIENT
  Sex: Male

DRUGS (5)
  1. XOLAIR [Suspect]
     Active Substance: OMALIZUMAB
     Dosage: 225 OT, BIW
     Route: 058
     Dates: start: 20160603
  2. PREDNISONE. [Suspect]
     Active Substance: PREDNISONE
     Indication: ECZEMA
  3. XOLAIR [Suspect]
     Active Substance: OMALIZUMAB
     Indication: ECZEMA
     Dosage: 2 DF (EVERY 3-4 WEEKS)
     Route: 058
  4. XOLAIR [Suspect]
     Active Substance: OMALIZUMAB
     Indication: ASTHMA
     Dosage: 225 MG BIW ABOUT 1 AND 1/4 VIAL EVERY 2 WEEKS
     Route: 058
  5. PREDNISONE. [Suspect]
     Active Substance: PREDNISONE
     Indication: ASTHMA
     Route: 065

REACTIONS (7)
  - Drug dose omission [Unknown]
  - Haemorrhage [Unknown]
  - Lymphadenopathy [Unknown]
  - Weight increased [Unknown]
  - Eczema [Unknown]
  - Drug ineffective [Unknown]
  - Eczema infected [Unknown]
